FAERS Safety Report 9443433 (Version 3)
Quarter: 2013Q3

REPORT INFORMATION
  Report Type: Spontaneous
  Country: JP (occurrence: JP)
  Receive Date: 20130806
  Receipt Date: 20130904
  Transmission Date: 20140515
  Serious: Yes (Other)
  Sender: FDA-Public Use
  Company Number: JP-GLAXOSMITHKLINE-B0912927A

PATIENT
  Age: 49 Year
  Sex: Female

DRUGS (3)
  1. SERETIDE (50MCG/250MCG) [Suspect]
     Indication: ASTHMA
     Dosage: 250MCG TWICE PER DAY
     Route: 055
     Dates: start: 20130709
  2. SYMBICORT [Concomitant]
     Indication: ASTHMA
     Dosage: 640MCG TWICE PER DAY
     Route: 055
     Dates: start: 20130626
  3. KIPRES [Concomitant]
     Indication: ASTHMA
     Dosage: 10MG PER DAY
     Route: 048

REACTIONS (2)
  - Sputum retention [Unknown]
  - Cheilitis [Unknown]
